FAERS Safety Report 8587481-7 (Version None)
Quarter: 2012Q3

REPORT INFORMATION
  Report Type: 
  Country: None (occurrence: None)
  Receive Date: 20120810
  Receipt Date: 20120509
  Transmission Date: 20120928
  Serious: No
  Sender: FDA-Public Use
  Company Number: US-009507513-2012SP027139

PATIENT

DRUGS (15)
  1. CLARITIN-D 24 HOUR [Suspect]
     Dosage: 10 MG, QD
     Route: 048
     Dates: start: 20111101, end: 20120301
  2. CLARITIN-D 24 HOUR [Suspect]
     Dosage: 10 MG, QD
     Route: 048
     Dates: start: 20120101, end: 20120401
  3. RELA [Concomitant]
     Indication: ARTHRITIS
     Dosage: UNK UNK, UNKNOWN
  4. LEVOXYL [Concomitant]
     Indication: THYROID DISORDER
     Dosage: 150 MG, UNKNOWN
  5. CELEBREX [Concomitant]
     Indication: ARTHRITIS
     Dosage: 200 MG, UNKNOWN
  6. VITAMIN E [Concomitant]
     Indication: PRODUCT USED FOR UNKNOWN INDICATION
     Dosage: UNK UNK, UNKNOWN
  7. OMEGA-3-ACID ETHYL ESTERS [Concomitant]
     Indication: PRODUCT USED FOR UNKNOWN INDICATION
     Dosage: UNK UNK, UNKNOWN
  8. CLARITIN-D 24 HOUR [Suspect]
     Dosage: 10 MG, QD
     Route: 048
     Dates: start: 20120101, end: 20120401
  9. ASCORBIC ACID [Concomitant]
     Indication: PRODUCT USED FOR UNKNOWN INDICATION
     Dosage: UNK UNK, UNKNOWN
  10. CYANOCOBALAMIN [Concomitant]
     Indication: PRODUCT USED FOR UNKNOWN INDICATION
     Dosage: UNK UNK, UNKNOWN
  11. CLARITIN-D 24 HOUR [Suspect]
     Indication: HYPERSENSITIVITY
     Dosage: 10 MG, QD
     Route: 048
     Dates: start: 20111101, end: 20120301
  12. TRIAMTERENE [Concomitant]
     Indication: OEDEMA
     Dosage: UNK UNK, UNKNOWN
  13. CLARITIN-D 24 HOUR [Suspect]
     Dosage: 10 MG, QD
     Route: 048
     Dates: start: 20120101, end: 20120401
  14. CHOLECALCIFEROL [Concomitant]
     Indication: PRODUCT USED FOR UNKNOWN INDICATION
     Dosage: UNK UNK, UNKNOWN
  15. METFORMIN HYDROCHLORIDE [Concomitant]
     Indication: DIABETES MELLITUS
     Dosage: 500 MG, BID

REACTIONS (3)
  - DRUG EFFECT INCREASED [None]
  - BLOOD PRESSURE INCREASED [None]
  - HEART RATE INCREASED [None]
